FAERS Safety Report 13183173 (Version 6)
Quarter: 2018Q2

REPORT INFORMATION
  Report Type: Report from Study
  Country: US (occurrence: US)
  Receive Date: 20170203
  Receipt Date: 20180423
  Transmission Date: 20180711
  Serious: Yes (Hospitalization, Other)
  Sender: FDA-Public Use
  Company Number: US-GILEAD-2017-0255777

PATIENT
  Age: 53 Year
  Sex: Male

DRUGS (2)
  1. AMBRISENTAN [Suspect]
     Active Substance: AMBRISENTAN
     Indication: PULMONARY HYPERTENSION
     Dosage: 10 MG, UNK
     Route: 065
     Dates: start: 20150311
  2. AMBRISENTAN [Suspect]
     Active Substance: AMBRISENTAN
     Indication: AUTOIMMUNE DISORDER

REACTIONS (5)
  - Cardiac failure [Unknown]
  - Fluid retention [Unknown]
  - Intentional product use issue [Not Recovered/Not Resolved]
  - Pulmonary hypertension [Unknown]
  - Cardiac disorder [Unknown]
